FAERS Safety Report 5338457-4 (Version None)
Quarter: 2007Q2

REPORT INFORMATION
  Report Type: 
  Country: None (occurrence: None)
  Receive Date: 20070322
  Receipt Date: 20060619
  Transmission Date: 20071010
  Serious: Yes (Other)
  Sender: FDA-Public Use
  Company Number: 200612181BCC

PATIENT
  Age: 47 Year
  Sex: Female
  Weight: 65.318 kg

DRUGS (5)
  1. ALEVE [Suspect]
     Indication: ARTHRALGIA
     Dosage: 220 MG, ONCE, ORAL
     Route: 048
     Dates: start: 20060515
  2. ALEVE [Suspect]
     Indication: BACK PAIN
     Dosage: 220 MG, ONCE, ORAL
     Route: 048
     Dates: start: 20060515
  3. ALEVE [Suspect]
     Indication: ARTHRALGIA
     Dosage: 220 MG, ONCE, ORAL
     Route: 048
     Dates: start: 20060520
  4. ALEVE [Suspect]
     Indication: BACK PAIN
     Dosage: 220 MG, ONCE, ORAL
     Route: 048
     Dates: start: 20060520
  5. PREMARIN (ESTROGENS CONJUGATED, MEDROGESTONE) [Concomitant]

REACTIONS (16)
  - ANAPHYLACTIC REACTION [None]
  - ANXIETY [None]
  - ASTHMA [None]
  - BLISTER [None]
  - BLOOD PRESSURE [None]
  - DYSPNOEA [None]
  - FEELING ABNORMAL [None]
  - HYPERKERATOSIS [None]
  - PAIN [None]
  - PRURITUS GENERALISED [None]
  - RESPIRATORY TRACT INFECTION [None]
  - SCAB [None]
  - SCAR [None]
  - SKIN BURNING SENSATION [None]
  - SWELLING FACE [None]
  - URTICARIA [None]
